FAERS Safety Report 18619608 (Version 2)
Quarter: 2020Q4

REPORT INFORMATION
  Report Type: Report from Study
  Country: AR (occurrence: AR)
  Receive Date: 20201215
  Receipt Date: 20201221
  Transmission Date: 20210114
  Serious: Yes (Other)
  Sender: FDA-Public Use
  Company Number: AR-ASTRAZENECA-2020SF66518

PATIENT
  Age: 64 Year
  Sex: Female
  Weight: 65.9 kg

DRUGS (10)
  1. PEMBROLIZUMAB. [Suspect]
     Active Substance: PEMBROLIZUMAB
     Indication: SARCOMA
     Dosage: 200 MILLIGRAM, Q3W
     Route: 042
     Dates: start: 20200522, end: 20200925
  2. ASCORBIC ACID. [Concomitant]
     Active Substance: ASCORBIC ACID
     Indication: PRODUCT USED FOR UNKNOWN INDICATION
     Dosage: 100 MILLIGRAM, QD
     Route: 048
     Dates: start: 20200612
  3. CYANOCOBALAMIN (+) FERROUS FUMARATE (+) FOLIC ACID [Concomitant]
     Indication: ANAEMIA
     Dosage: 1 CAPSULE, QD
     Route: 048
     Dates: start: 20200612
  4. OLAPARIB. [Suspect]
     Active Substance: OLAPARIB
     Indication: SARCOMA
     Dosage: STARTING DOSE: 600 MILLIGRAM DAILY, FLUCTUATED DOSAGE
     Route: 048
     Dates: start: 20200522, end: 20201014
  5. PEMBROLIZUMAB. [Suspect]
     Active Substance: PEMBROLIZUMAB
     Indication: SARCOMA
     Dosage: 200 MILLIGRAM, Q3W
     Route: 042
     Dates: start: 20201020, end: 20201020
  6. ALPRAZOLAM. [Concomitant]
     Active Substance: ALPRAZOLAM
     Indication: INSOMNIA
     Dosage: 0.5 MILLIGRAM, QD, FORMULATION: CAPLET
     Route: 048
     Dates: start: 202001
  7. EPOETIN (UNSPECIFIED) [Concomitant]
     Active Substance: ERYTHROPOIETIN
     Indication: ANAEMIA
     Dosage: TOTAL DAILY DOSE: 8000 INTERNATIONAL UNITS, FREQUENCY: OTHER
     Route: 058
     Dates: start: 20201020
  8. HYDROCORTISONE. [Concomitant]
     Active Substance: HYDROCORTISONE
     Indication: ADRENAL INSUFFICIENCY
     Dosage: TOTAL DAILY DOSE: 15 MILLIGRAM, FREQUENCY: OTHER, FORMULATION: CAPLET
     Route: 048
     Dates: start: 20200612
  9. OLAPARIB. [Suspect]
     Active Substance: OLAPARIB
     Indication: SARCOMA
     Dosage: 300 MILLIGRAM, BID
     Route: 048
     Dates: start: 20201014, end: 20201106
  10. PAROXETINE. [Concomitant]
     Active Substance: PAROXETINE
     Indication: ANXIETY
     Dosage: 10 MILLIGRAM, QD
     Route: 048
     Dates: start: 20200507

REACTIONS (1)
  - Myelodysplastic syndrome [Recovering/Resolving]

NARRATIVE: CASE EVENT DATE: 20201204
